FAERS Safety Report 9549667 (Version 1)
Quarter: 2013Q3

REPORT INFORMATION
  Report Type: Spontaneous
  Country: US (occurrence: US)
  Receive Date: 20130924
  Receipt Date: 20130924
  Transmission Date: 20140515
  Serious: No
  Sender: FDA-Public Use
  Company Number: US-009507513-1210USA003680

PATIENT
  Sex: 0

DRUGS (1)
  1. MK-8415 [Suspect]
     Dosage: 3 YEAR IMPLANT

REACTIONS (3)
  - Device difficult to use [Unknown]
  - Device dislocation [Unknown]
  - No adverse event [Unknown]
